FAERS Safety Report 19422005 (Version 1)
Quarter: 2021Q2

REPORT INFORMATION
  Report Type: Spontaneous
  Country: US (occurrence: US)
  Receive Date: 20210615
  Receipt Date: 20210615
  Transmission Date: 20210717
  Serious: Yes (Hospitalization)
  Sender: FDA-Public Use
  Company Number: None

PATIENT
  Age: 80 Year
  Sex: Female

DRUGS (1)
  1. CAPECITABINE TAB 500MG [Suspect]
     Active Substance: CAPECITABINE
     Route: 048
     Dates: start: 202012

REACTIONS (5)
  - Anaemia [None]
  - Nausea [None]
  - Dizziness [None]
  - Intentional dose omission [None]
  - Blood sodium decreased [None]

NARRATIVE: CASE EVENT DATE: 20210607
